FAERS Safety Report 18339315 (Version 1)
Quarter: 2020Q3

REPORT INFORMATION
  Report Type: Spontaneous
  Country: US (occurrence: US)
  Receive Date: 20200930
  Receipt Date: 20200930
  Transmission Date: 20201103
  Serious: Yes (Hospitalization)
  Sender: FDA-Public Use
  Company Number: None

PATIENT
  Age: 79 Year
  Sex: Male

DRUGS (1)
  1. ATORVASTATIN (ATORVASTATIN CA 80MG TAB) [Suspect]
     Active Substance: ATORVASTATIN
     Indication: HYPERLIPIDAEMIA
     Route: 048
     Dates: start: 20170622, end: 20200731

REACTIONS (16)
  - Aspartate aminotransferase increased [None]
  - Blood alkaline phosphatase increased [None]
  - Lipase increased [None]
  - Haemodialysis [None]
  - Blood bilirubin increased [None]
  - Renal failure [None]
  - Muscular weakness [None]
  - Leukocytosis [None]
  - Acute kidney injury [None]
  - Lactic acidosis [None]
  - Myopathy [None]
  - Fall [None]
  - Muscle necrosis [None]
  - Hepatic function abnormal [None]
  - Alanine aminotransferase increased [None]
  - Rhabdomyolysis [None]

NARRATIVE: CASE EVENT DATE: 20200620
